FAERS Safety Report 6644257-5 (Version None)
Quarter: 2010Q1

REPORT INFORMATION
  Report Type: 
  Country: None (occurrence: None)
  Receive Date: 20100304
  Receipt Date: 20090421
  Transmission Date: 20100710
  Serious: Yes (Hospitalization)
  Sender: FDA-Public Use
  Company Number: US-002790

PATIENT
  Age: 52 Year
  Sex: Male
  Weight: 92 kg

DRUGS (11)
  1. ISOVUE-200 [Suspect]
     Indication: SPINAL COLUMN STENOSIS
     Dosage: 20ML QD INTRATHECAL
     Route: 037
     Dates: start: 20090415, end: 20090415
  2. ISOVUE-200 [Suspect]
     Indication: SPINAL MYELOGRAM
     Dosage: 20ML QD INTRATHECAL
     Route: 037
     Dates: start: 20090415, end: 20090415
  3. ASPIRIN [Concomitant]
  4. BENICAR [Concomitant]
  5. COMBIVENT [Concomitant]
  6. CYMBALTA [Concomitant]
  7. LIPITOR [Concomitant]
  8. TRICOR [Concomitant]
  9. TOPROL-XL [Concomitant]
  10. SUBOXONE [Concomitant]
  11. AMLODIPINE [Concomitant]

REACTIONS (1)
  - MENINGITIS [None]
